FAERS Safety Report 7906546-3 (Version None)
Quarter: 2011Q4

REPORT INFORMATION
  Report Type: 
  Country: None (occurrence: None)
  Receive Date: 20111110
  Receipt Date: 20111102
  Transmission Date: 20120403
  Serious: Yes (Other)
  Sender: FDA-Public Use
  Company Number: US-PFIZER INC-2011268653

PATIENT
  Sex: Female
  Weight: 92.063 kg

DRUGS (7)
  1. MEDROL [Suspect]
     Indication: CONNECTIVE TISSUE INFLAMMATION
  2. MEDROL [Suspect]
     Indication: LYMPHATIC DISORDER
  3. MEDROL [Suspect]
     Indication: AUTOIMMUNE DISORDER
     Dosage: 4 MG, 2X/DAY
     Route: 048
     Dates: start: 20070101
  4. MEDROL [Suspect]
     Indication: RHEUMATOID ARTHRITIS
  5. MEDROL [Suspect]
     Indication: INFLAMMATION
  6. MEDROL [Suspect]
     Indication: CONTRACEPTION
  7. MEDROL [Suspect]
     Indication: VASCULITIS

REACTIONS (11)
  - POOR QUALITY DRUG ADMINISTERED [None]
  - DRUG WITHDRAWAL SYNDROME [None]
  - MUSCLE DISORDER [None]
  - DYSPEPSIA [None]
  - HYPOTHYROIDISM [None]
  - CHROMATURIA [None]
  - RENAL DISORDER [None]
  - PRODUCT QUALITY ISSUE [None]
  - NEUTROPHIL COUNT INCREASED [None]
  - TABLET PHYSICAL ISSUE [None]
  - ORAL PAIN [None]
